FAERS Safety Report 7815147-7 (Version None)
Quarter: 2011Q4

REPORT INFORMATION
  Report Type: 
  Country: None (occurrence: None)
  Receive Date: 20111014
  Receipt Date: 20111014
  Transmission Date: 20120403
  Serious: Yes (Life-Threatening, Hospitalization)
  Sender: FDA-Public Use
  Company Number: None

PATIENT
  Age: 83 Year
  Sex: Male
  Weight: 85 kg

DRUGS (1)
  1. LEUPROLIDE ACETATE [Suspect]
     Indication: PROSTATE CANCER STAGE II
     Dosage: 30MG
     Route: 030
     Dates: start: 20110930, end: 20110930

REACTIONS (6)
  - PITUITARY HAEMORRHAGE [None]
  - SOMNOLENCE [None]
  - INCOHERENT [None]
  - DIARRHOEA [None]
  - HYPOPHAGIA [None]
  - HEADACHE [None]
